FAERS Safety Report 10188162 (Version 1)
Quarter: 2014Q2

REPORT INFORMATION
  Report Type: Spontaneous
  Country: US (occurrence: None)
  Receive Date: 20140521
  Receipt Date: 20140521
  Transmission Date: 20141212
  Serious: Yes (Other)
  Sender: FDA-Public Use
  Company Number: None

PATIENT
  Age: 15 Year
  Sex: Female
  Weight: 54.43 kg

DRUGS (3)
  1. LINDANE [Suspect]
     Indication: LICE INFESTATION
     Dosage: 6 YEARS AGO?ONE BOTTLE?ONCE OR TWICE IN ONE MONTH ?TOPICAL SHAMPOO
     Route: 061
  2. NEXPHANON BIRTH CONTROL [Concomitant]
  3. ZOLOFT [Concomitant]

REACTIONS (1)
  - Generalised tonic-clonic seizure [None]
